FAERS Safety Report 25528296 (Version 2)
Quarter: 2025Q3

REPORT INFORMATION
  Report Type: Spontaneous
  Country: JP (occurrence: JP)
  Receive Date: 20250708
  Receipt Date: 20250929
  Transmission Date: 20251020
  Serious: Yes (Other)
  Sender: INSMED
  Company Number: JP-INSMED, INC.-2025-02482-JP

PATIENT
  Age: 83 Year
  Sex: Male

DRUGS (1)
  1. ARIKAYCE [Suspect]
     Active Substance: AMIKACIN
     Indication: Mycobacterium avium complex infection
     Dosage: 590 MILLIGRAM, QD
     Route: 055

REACTIONS (3)
  - Dementia [Unknown]
  - Emotional distress [Unknown]
  - Wrong technique in device usage process [Unknown]
